FAERS Safety Report 15360538 (Version 1)
Quarter: 2018Q3

REPORT INFORMATION
  Report Type: Spontaneous
  Country: US (occurrence: US)
  Receive Date: 20180907
  Receipt Date: 20180907
  Transmission Date: 20181010
  Serious: Yes (Other)
  Sender: FDA-Public Use
  Company Number: US-TEVA-2018-US-952231

PATIENT
  Sex: Female

DRUGS (3)
  1. QVAR [Suspect]
     Active Substance: BECLOMETHASONE DIPROPIONATE
     Indication: INTERSTITIAL LUNG DISEASE
  2. SPIRIVA [Concomitant]
     Active Substance: TIOTROPIUM BROMIDE MONOHYDRATE
     Route: 065
  3. QVAR [Suspect]
     Active Substance: BECLOMETHASONE DIPROPIONATE
     Indication: ASTHMA
     Dosage: 160 MICROGRAM DAILY;
     Dates: start: 20180817

REACTIONS (5)
  - Dyspnoea [Unknown]
  - Cough [Unknown]
  - Dizziness [Unknown]
  - Feeling abnormal [Unknown]
  - Hypersensitivity [Unknown]
